FAERS Safety Report 25109472 (Version 1)
Quarter: 2025Q1

REPORT INFORMATION
  Report Type: Spontaneous
  Country: US (occurrence: US)
  Receive Date: 20250323
  Receipt Date: 20250323
  Transmission Date: 20250409
  Serious: Yes (Other)
  Sender: EISAI
  Company Number: US-Eisai-EC-2025-186157

PATIENT
  Age: 49 Year
  Sex: Female

DRUGS (14)
  1. LENVATINIB [Suspect]
     Active Substance: LENVATINIB
     Indication: Endometrial cancer
  2. LENVATINIB [Suspect]
     Active Substance: LENVATINIB
  3. LENVATINIB [Suspect]
     Active Substance: LENVATINIB
  4. LENVATINIB [Suspect]
     Active Substance: LENVATINIB
  5. LENVATINIB [Suspect]
     Active Substance: LENVATINIB
  6. LENVATINIB [Suspect]
     Active Substance: LENVATINIB
  7. LENVATINIB [Suspect]
     Active Substance: LENVATINIB
  8. PEMBROLIZUMAB [Suspect]
     Active Substance: PEMBROLIZUMAB
     Indication: Endometrial cancer
  9. PEMBROLIZUMAB [Suspect]
     Active Substance: PEMBROLIZUMAB
  10. PEMBROLIZUMAB [Suspect]
     Active Substance: PEMBROLIZUMAB
  11. PEMBROLIZUMAB [Suspect]
     Active Substance: PEMBROLIZUMAB
  12. PEMBROLIZUMAB [Suspect]
     Active Substance: PEMBROLIZUMAB
  13. PEMBROLIZUMAB [Suspect]
     Active Substance: PEMBROLIZUMAB
  14. PEMBROLIZUMAB [Suspect]
     Active Substance: PEMBROLIZUMAB

REACTIONS (6)
  - Adrenal insufficiency [Unknown]
  - Hypertension [Unknown]
  - Colitis [Unknown]
  - Hypothyroidism [Unknown]
  - Hepatic enzyme increased [Unknown]
  - Otitis externa [Unknown]
